FAERS Safety Report 24630898 (Version 1)
Quarter: 2024Q4

REPORT INFORMATION
  Report Type: Spontaneous
  Country: US (occurrence: None)
  Receive Date: 20241116
  Receipt Date: 20241116
  Transmission Date: 20250114
  Serious: Yes (Other)
  Sender: Public
  Company Number: None

PATIENT
  Age: 73 Year
  Sex: Female
  Weight: 58.5 kg

DRUGS (5)
  1. ROSUVASTATIN CALCIUM [Suspect]
     Active Substance: ROSUVASTATIN CALCIUM
     Indication: Low density lipoprotein increased
     Dosage: OTHER QUANTITY : 1 TABLET(S);?FREQUENCY : AT BEDTIME;?
     Route: 048
     Dates: start: 20240901, end: 20241110
  2. SYNTHROID [Concomitant]
     Active Substance: LEVOTHYROXINE SODIUM
  3. VITAMIN C [Concomitant]
     Active Substance: ASCORBIC ACID
  4. VITAMIN D3 [Concomitant]
     Active Substance: CHOLECALCIFEROL
  5. CALCIUM [Concomitant]
     Active Substance: CALCIUM

REACTIONS (17)
  - Headache [None]
  - Fatigue [None]
  - Nausea [None]
  - Sinus disorder [None]
  - Constipation [None]
  - Myalgia [None]
  - Migraine [None]
  - Brain fog [None]
  - Dizziness [None]
  - Muscular weakness [None]
  - Palpitations [None]
  - Blood pressure increased [None]
  - Nervousness [None]
  - Anxiety [None]
  - Mood swings [None]
  - Anger [None]
  - Therapy cessation [None]
